APPROVED DRUG PRODUCT: DILTIAZEM HYDROCHLORIDE IN DEXTROSE 5%
Active Ingredient: DILTIAZEM HYDROCHLORIDE
Strength: 250MG/250ML (1MG/ML) **Federal Register determination that product was not discontinued or withdrawn for safety or effectiveness reasons**
Dosage Form/Route: SOLUTION;INTRAVENOUS
Application: N215252 | Product #002
Applicant: EXELA PHARMA SCIENCES LLC
Approved: Oct 28, 2021 | RLD: Yes | RS: No | Type: DISCN